FAERS Safety Report 5997568-0 (Version None)
Quarter: 2008Q4

REPORT INFORMATION
  Report Type: 
  Country: None (occurrence: None)
  Receive Date: 20081212
  Receipt Date: 20081118
  Transmission Date: 20090506
  Serious: No
  Sender: FDA-Public Use
  Company Number: US-ABBOTT-08P-163-0488187-00

PATIENT
  Sex: Male
  Weight: 93.07 kg

DRUGS (2)
  1. HUMIRA [Suspect]
     Indication: RHEUMATOID ARTHRITIS
     Route: 058
     Dates: start: 20080501
  2. UNKNOWN ANTIBIOTIC [Concomitant]
     Indication: NASAL CONGESTION
     Dates: start: 20081101, end: 20081101

REACTIONS (3)
  - DRUG DELIVERY SYSTEM MALFUNCTION [None]
  - PYREXIA [None]
  - RHINORRHOEA [None]
